FAERS Safety Report 23289998 (Version 2)
Quarter: 2023Q4

REPORT INFORMATION
  Report Type: Spontaneous
  Country: CH (occurrence: CH)
  Receive Date: 20231212
  Receipt Date: 20231222
  Transmission Date: 20240110
  Serious: Yes (Disabling, Other)
  Sender: FDA-Public Use
  Company Number: CH-BEH-2023166204

PATIENT
  Age: 75 Year
  Sex: Female
  Weight: 73 kg

DRUGS (16)
  1. VONCENTO [Suspect]
     Active Substance: HUMAN COAGULATION FACTOR VIII/VON WILLEBRAND FACTOR COMPLEX
     Indication: Haemorrhage prophylaxis
     Dosage: 500 INTERNATIONAL UNIT, QD
     Route: 042
     Dates: start: 20231016, end: 20231016
  2. VONCENTO [Suspect]
     Active Substance: HUMAN COAGULATION FACTOR VIII/VON WILLEBRAND FACTOR COMPLEX
     Dosage: 500 INTERNATIONAL UNIT, QD
     Route: 042
     Dates: start: 20231017, end: 20231017
  3. VONCENTO [Suspect]
     Active Substance: HUMAN COAGULATION FACTOR VIII/VON WILLEBRAND FACTOR COMPLEX
     Dosage: 500 INTERNATIONAL UNIT, QD
     Route: 042
     Dates: start: 20231018, end: 20231018
  4. VONCENTO [Suspect]
     Active Substance: HUMAN COAGULATION FACTOR VIII/VON WILLEBRAND FACTOR COMPLEX
     Dosage: UNK
     Route: 042
  5. VONCENTO [Suspect]
     Active Substance: HUMAN COAGULATION FACTOR VIII/VON WILLEBRAND FACTOR COMPLEX
     Dosage: UNK
     Route: 042
  6. VONCENTO [Suspect]
     Active Substance: HUMAN COAGULATION FACTOR VIII/VON WILLEBRAND FACTOR COMPLEX
     Dosage: 1500 INTERNATIONAL UNIT
     Route: 042
     Dates: start: 20231016, end: 20231016
  7. VONCENTO [Suspect]
     Active Substance: HUMAN COAGULATION FACTOR VIII/VON WILLEBRAND FACTOR COMPLEX
     Dosage: 1500 INTERNATIONAL UNIT
     Route: 042
     Dates: start: 20231017, end: 20231017
  8. VONCENTO [Suspect]
     Active Substance: HUMAN COAGULATION FACTOR VIII/VON WILLEBRAND FACTOR COMPLEX
     Dosage: 1500 INTERNATIONAL UNIT
     Route: 042
     Dates: start: 20231018, end: 20231018
  9. HAEMATE P [Suspect]
     Active Substance: ANTIHEMOPHILIC FACTOR HUMAN
     Route: 065
  10. ALDACTONE [Concomitant]
     Active Substance: SPIRONOLACTONE
     Indication: Hypertension
     Dosage: 25 MILLIGRAM, QD
     Route: 048
  11. CIPRALEX [Concomitant]
     Active Substance: ESCITALOPRAM OXALATE
     Indication: Depression
     Dosage: 10 MILLIGRAM, QD
     Route: 048
  12. TORSEMIDE [Concomitant]
     Active Substance: TORSEMIDE
     Indication: Hypertension
     Dosage: 10 MILLIGRAM, QD
     Route: 048
  13. PANTOPRAZOLE [Concomitant]
     Active Substance: PANTOPRAZOLE
     Indication: Prophylaxis
     Dosage: 40 MILLIGRAM, QD
     Route: 048
  14. NOVALGIN (METAMIZOLE SODIUM) [Concomitant]
     Active Substance: METAMIZOLE SODIUM
     Indication: Analgesic therapy
     Dosage: 500 MILLIGRAM 4X2 PER DAY
     Route: 048
  15. SOLU-MEDROL [Concomitant]
     Active Substance: METHYLPREDNISOLONE SODIUM SUCCINATE
     Indication: Premedication
     Dosage: 20 MILLIGRAM
  16. CLEMASTINE FUMARATE [Concomitant]
     Active Substance: CLEMASTINE FUMARATE
     Indication: Premedication
     Dosage: 1 MILLIGRAM

REACTIONS (8)
  - Diarrhoea [Recovered/Resolved]
  - Drug hypersensitivity [Unknown]
  - Nasopharyngitis [Unknown]
  - Pelvic pain [Unknown]
  - Arthralgia [Unknown]
  - Tendonitis [Unknown]
  - Sciatica [Unknown]
  - Drug hypersensitivity [Unknown]

NARRATIVE: CASE EVENT DATE: 20231016
